FAERS Safety Report 25980839 (Version 2)
Quarter: 2025Q4

REPORT INFORMATION
  Report Type: Spontaneous
  Country: EU (occurrence: EU)
  Receive Date: 20251030
  Receipt Date: 20251219
  Transmission Date: 20260118
  Serious: No
  Sender: JOHNSON AND JOHNSON
  Company Number: EU-JNJFOC-20251036040

PATIENT

DRUGS (2)
  1. INLEXZO [Suspect]
     Active Substance: GEMCITABINE
     Indication: Product used for unknown indication
     Route: 043
  2. INLEXZO [Suspect]
     Active Substance: GEMCITABINE

REACTIONS (1)
  - Device dislocation [Unknown]
